FAERS Safety Report 13462691 (Version 1)
Quarter: 2017Q2

REPORT INFORMATION
  Report Type: Report from Study
  Country: FR (occurrence: FR)
  Receive Date: 20170420
  Receipt Date: 20170420
  Transmission Date: 20170830
  Serious: Yes (Other)
  Sender: FDA-Public Use
  Company Number: FR-ASTRAZENECA-2017SE40145

PATIENT
  Age: 21564 Day
  Sex: Female

DRUGS (7)
  1. CARBOPLATIN. [Suspect]
     Active Substance: CARBOPLATIN
     Route: 065
     Dates: end: 20161110
  2. FUNGIZONE [Concomitant]
     Active Substance: AMPHOTERICIN B
  3. TAXOL [Suspect]
     Active Substance: PACLITAXEL
     Route: 065
     Dates: end: 20161110
  4. OLAPARIB [Suspect]
     Active Substance: OLAPARIB
     Indication: OVARIAN CANCER
     Route: 048
     Dates: start: 20161222, end: 20170102
  5. AVASTIN [Suspect]
     Active Substance: BEVACIZUMAB
     Indication: OVARIAN CANCER
     Dosage: 15, MG/KG MILLIGRAM(S)/KILOGRAM 1, 21, DAYS
     Route: 042
     Dates: start: 20161222, end: 20161222
  6. LYRICA [Concomitant]
     Active Substance: PREGABALIN
  7. VITAMIN B1 AND B6 [Concomitant]
     Active Substance: PYRIDOXINE HYDROCHLORIDE\THIAMINE HYDROCHLORIDE

REACTIONS (1)
  - Eye infection [Not Recovered/Not Resolved]

NARRATIVE: CASE EVENT DATE: 20170102
